FAERS Safety Report 16971046 (Version 2)
Quarter: 2021Q4

REPORT INFORMATION
  Report Type: Report from Study
  Country: IT (occurrence: IT)
  Receive Date: 20191029
  Receipt Date: 20211117
  Transmission Date: 20220303
  Serious: No
  Sender: FDA-Public Use
  Company Number: IT-009507513-1910ITA013097

PATIENT
  Age: 85 Year
  Sex: Male

DRUGS (1)
  1. ELBASVIR\GRAZOPREVIR [Suspect]
     Active Substance: ELBASVIR\GRAZOPREVIR
     Indication: Chronic hepatitis C
     Dosage: 100/50 MG/D

REACTIONS (1)
  - Drug ineffective [Unknown]
